FAERS Safety Report 6492234-X (Version None)
Quarter: 2009Q4

REPORT INFORMATION
  Report Type: 
  Country: None (occurrence: None)
  Receive Date: 20091214
  Receipt Date: 20091203
  Transmission Date: 20100525
  Serious: Yes (Hospitalization)
  Sender: FDA-Public Use
  Company Number: US-JNJFOC-20091201625

PATIENT
  Sex: Female
  Weight: 78.02 kg

DRUGS (9)
  1. REMICADE [Suspect]
     Indication: RHEUMATOID ARTHRITIS
     Dosage: 2 DOSES TOTAL
     Route: 042
     Dates: start: 20090908
  2. SALAGEN [Concomitant]
  3. PREDNISONE [Concomitant]
  4. EFFEXOR [Concomitant]
  5. INDOMETHACIN [Concomitant]
  6. PREMARIN [Concomitant]
  7. FOLIC ACID [Concomitant]
  8. METHOTREXATE [Concomitant]
  9. ATARAX [Concomitant]

REACTIONS (4)
  - HEPATIC NECROSIS [None]
  - HISTOPLASMOSIS [None]
  - RENAL FAILURE ACUTE [None]
  - THROMBOCYTOPENIA [None]
